FAERS Safety Report 5390897-3 (Version None)
Quarter: 2007Q3

REPORT INFORMATION
  Report Type: 
  Country: None (occurrence: None)
  Receive Date: 20070716
  Receipt Date: 20070705
  Transmission Date: 20080115
  Serious: Yes (Hospitalization)
  Sender: FDA-Public Use
  Company Number: 16914

PATIENT
  Age: 69 Year
  Sex: Male
  Weight: 68.0396 kg

DRUGS (21)
  1. PENTOSTATIN [Suspect]
     Dosage: 7.24 MG 3/WK IV
     Route: 042
     Dates: start: 20070123, end: 20070626
  2. CYTOXAN [Suspect]
     Dosage: 108 MG 3/WK IV
     Route: 042
     Dates: start: 20070123, end: 20070626
  3. RITUXAN [Suspect]
     Dosage: 678 MG 3/WK IV
     Route: 042
     Dates: start: 20070123, end: 20070626
  4. COMPAZINE /00013302/ [Concomitant]
  5. TOPROL-XL [Concomitant]
  6. LIPITOR /01326101/. MFR: NOT SPECIFIED [Concomitant]
  7. PRILOSEC [Concomitant]
  8. ASA. MFR: NOT SPECIFIED [Concomitant]
  9. NIACIN [Concomitant]
  10. FEOSOL [Concomitant]
  11. CITRICAL. MFR: NOT SPECIFIED [Concomitant]
  12. CENTRUM SILVER [Concomitant]
  13. FISH OIL CAPS [Concomitant]
  14. ACYCLOVIR [Concomitant]
  15. ALLOPURINOL [Concomitant]
  16. DAPSONE [Concomitant]
  17. ARANESP. MFR: NOT SPECIFIED [Concomitant]
  18. TYLENOL /00020001/. MFR: NOT SPECIFIED [Concomitant]
  19. VESICARE /01735901/. MFR: NOT SPECIFIED [Concomitant]
  20. FLOMAX /00889901/. MFR: NOT SPECIFIED [Concomitant]
  21. OXYGEN [Concomitant]

REACTIONS (4)
  - COUGH [None]
  - DYSPNOEA [None]
  - HYPOXIA [None]
  - PLEURAL EFFUSION [None]
